FAERS Safety Report 23759732 (Version 4)
Quarter: 2024Q2

REPORT INFORMATION
  Report Type: Spontaneous
  Country: US (occurrence: US)
  Receive Date: 20240419
  Receipt Date: 20240426
  Transmission Date: 20240716
  Serious: Yes (Other)
  Sender: FDA-Public Use
  Company Number: US-ABBVIE-5723830

PATIENT
  Sex: Female

DRUGS (1)
  1. REFRESH PLUS [Suspect]
     Active Substance: CARBOXYMETHYLCELLULOSE SODIUM
     Indication: Dry eye
     Dosage: FORM STRENGTH- CMC 5MG/ML SOLUTION UNIT DOSE
     Route: 047

REACTIONS (8)
  - Cataract [Unknown]
  - Eye injury [Unknown]
  - Visual impairment [Unknown]
  - Adverse drug reaction [Unknown]
  - Eye irritation [Not Recovered/Not Resolved]
  - Vision blurred [Not Recovered/Not Resolved]
  - Poor quality sleep [Unknown]
  - Drug ineffective [Unknown]

NARRATIVE: CASE EVENT DATE: 20240416
